FAERS Safety Report 9112496 (Version 4)
Quarter: 2013Q2

REPORT INFORMATION
  Report Type: Report from Study
  Country: TR (occurrence: TR)
  Receive Date: 20130211
  Receipt Date: 20130423
  Transmission Date: 20140414
  Serious: Yes (Life-Threatening, Hospitalization)
  Sender: FDA-Public Use
  Company Number: PHHY2013TR007525

PATIENT
  Age: 10 Year
  Sex: Female
  Weight: 23.4 kg

DRUGS (1)
  1. ICL670A [Suspect]
     Dosage: 625 MG, DAILY
     Route: 048
     Dates: start: 20081202, end: 20130115

REACTIONS (21)
  - Convulsion [Recovered/Resolved]
  - Renal tubular disorder [Recovered/Resolved]
  - Abdominal pain [Not Recovered/Not Resolved]
  - Blood creatinine increased [Unknown]
  - Hyponatraemia [Recovered/Resolved]
  - Hypokalaemia [Not Recovered/Not Resolved]
  - Electrolyte imbalance [Recovering/Resolving]
  - Hepatotoxicity [Recovered/Resolved]
  - Glycosuria [Recovered/Resolved]
  - Hypophosphataemia [Recovered/Resolved]
  - Flank pain [Recovered/Resolved]
  - Myalgia [Recovered/Resolved]
  - Swelling [Recovered/Resolved]
  - Arthralgia [Recovered/Resolved]
  - Dehydration [Recovered/Resolved]
  - Pyrexia [Recovered/Resolved]
  - Rash pruritic [Recovered/Resolved]
  - Hepatic failure [Recovered/Resolved]
  - Jaundice [Unknown]
  - Chromaturia [Unknown]
  - Nausea [Unknown]
